FAERS Safety Report 21415702 (Version 8)
Quarter: 2023Q2

REPORT INFORMATION
  Report Type: Report from Study
  Country: BR (occurrence: BR)
  Receive Date: 20221006
  Receipt Date: 20230605
  Transmission Date: 20230722
  Serious: Yes (Death, Hospitalization, Other)
  Sender: FDA-Public Use
  Company Number: BR-NOVARTISPH-NVSC2022BR224879

PATIENT
  Age: 67 Year
  Sex: Female

DRUGS (3)
  1. KISQALI [Suspect]
     Active Substance: RIBOCICLIB
     Indication: Product used for unknown indication
     Dosage: UNK
     Route: 065
     Dates: start: 20220909
  2. KISQALI [Suspect]
     Active Substance: RIBOCICLIB
     Dosage: UNK
     Route: 065
     Dates: start: 20220909
  3. ANASTROZOLE [Suspect]
     Active Substance: ANASTROZOLE
     Indication: Product used for unknown indication
     Dosage: UNK (AFTER BREAKFAST)
     Route: 065

REACTIONS (25)
  - Death [Fatal]
  - Respiratory failure [Unknown]
  - Ascites [Not Recovered/Not Resolved]
  - Malaise [Not Recovered/Not Resolved]
  - Pulmonary embolism [Unknown]
  - Dyspnoea [Recovering/Resolving]
  - Diabetes mellitus [Unknown]
  - Thrombosis [Unknown]
  - Pulmonary oedema [Unknown]
  - General physical condition abnormal [Unknown]
  - Muscle swelling [Not Recovered/Not Resolved]
  - Dysstasia [Unknown]
  - Palatal disorder [Unknown]
  - Taste disorder [Unknown]
  - Nervousness [Unknown]
  - Dysphagia [Unknown]
  - Abdominal distension [Not Recovered/Not Resolved]
  - Eating disorder [Unknown]
  - Odynophagia [Unknown]
  - Urine output increased [Unknown]
  - Peripheral swelling [Not Recovered/Not Resolved]
  - Nausea [Recovered/Resolved]
  - Nausea [Not Recovered/Not Resolved]
  - Dry skin [Unknown]
  - Asthenia [Unknown]

NARRATIVE: CASE EVENT DATE: 20230103
